FAERS Safety Report 20297169 (Version 1)
Quarter: 2022Q1

REPORT INFORMATION
  Report Type: Spontaneous
  Country: US (occurrence: None)
  Receive Date: 20220105
  Receipt Date: 20220105
  Transmission Date: 20220424
  Serious: No
  Sender: FDA-Public Use
  Company Number: US-ROCHE-2797944

PATIENT
  Age: 34 Year
  Sex: Male

DRUGS (2)
  1. HEMLIBRA [Suspect]
     Active Substance: EMICIZUMAB-KXWH
     Indication: Factor VIII deficiency
     Route: 058
     Dates: start: 20190130
  2. HEMLIBRA [Suspect]
     Active Substance: EMICIZUMAB-KXWH
     Route: 065
     Dates: start: 201902

REACTIONS (3)
  - Haemorrhage [Recovered/Resolved]
  - Muscle injury [Unknown]
  - Tendon injury [Unknown]

NARRATIVE: CASE EVENT DATE: 20210201
